FAERS Safety Report 15603355 (Version 1)
Quarter: 2018Q4

REPORT INFORMATION
  Report Type: Report from Study
  Country: IT (occurrence: IT)
  Receive Date: 20181109
  Receipt Date: 20181109
  Transmission Date: 20190205
  Serious: Yes (Hospitalization)
  Sender: FDA-Public Use
  Company Number: IT-BAYER-2018-204444

PATIENT
  Age: 70 Year
  Sex: Female

DRUGS (6)
  1. ATENOLOL. [Concomitant]
     Active Substance: ATENOLOL
     Dosage: UNK
  2. FOLINA [Concomitant]
     Active Substance: FOLIC ACID
     Dosage: UNK
  3. ACENOCOUMAROL [Interacting]
     Active Substance: ACENOCOUMAROL
     Indication: ATRIAL FIBRILLATION
     Dosage: UNK
     Route: 048
  4. PANTOPRAZOLE [Concomitant]
     Active Substance: PANTOPRAZOLE
  5. ACETYLSALICYLIC ACID [Suspect]
     Active Substance: ASPIRIN
     Indication: PROPHYLAXIS
     Dosage: 100 MG, QD
     Route: 048
  6. FERRO-GRAD [Concomitant]
     Active Substance: FERROUS SULFATE
     Dosage: UNK

REACTIONS (6)
  - Asthenia [Recovering/Resolving]
  - Vomiting [Recovering/Resolving]
  - Melaena [Recovering/Resolving]
  - Drug interaction [Recovering/Resolving]
  - International normalised ratio increased [Recovering/Resolving]
  - Haemorrhagic anaemia [Recovering/Resolving]

NARRATIVE: CASE EVENT DATE: 20180805
